FAERS Safety Report 18048834 (Version 2)
Quarter: 2020Q3

REPORT INFORMATION
  Report Type: Spontaneous
  Country: FR (occurrence: FR)
  Receive Date: 20200721
  Receipt Date: 20200925
  Transmission Date: 20201103
  Serious: Yes (Other)
  Sender: FDA-Public Use
  Company Number: FR-CADILA HEALTHCARE LIMITED-FR-ZYDUS-032480

PATIENT

DRUGS (4)
  1. NAPROXENE [Suspect]
     Active Substance: NAPROXEN
     Indication: PSORIATIC ARTHROPATHY
     Dosage: 1100 MILLIGRAM,1100 MG, UNK
     Route: 048
     Dates: start: 201611
  2. USTEKINUMAB [Suspect]
     Active Substance: USTEKINUMAB
     Indication: PSORIATIC ARTHROPATHY
     Dosage: 45 MILLIGRAM,45 MG, UNK,(INTERVAL :3 WEEKS)
     Route: 058
     Dates: start: 201607
  3. TRAMADOL. [Suspect]
     Active Substance: TRAMADOL
     Indication: PSORIATIC ARTHROPATHY
     Dosage: DOSAGE FORM: UNSPECIFIED ()
     Route: 048
     Dates: start: 2016
  4. USTEKINUMAB [Suspect]
     Active Substance: USTEKINUMAB
     Indication: PSORIATIC ARTHROPATHY
     Dosage: 45 MILLIGRAM,45 MG, UNK,(INTERVAL :3 WEEKS)
     Route: 058
     Dates: start: 201702

REACTIONS (5)
  - Maternal exposure timing unspecified [Recovered/Resolved with Sequelae]
  - Device ineffective [Recovered/Resolved with Sequelae]
  - Pregnancy [Recovered/Resolved with Sequelae]
  - Off label use [Unknown]
  - Inappropriate schedule of product administration [Unknown]

NARRATIVE: CASE EVENT DATE: 201607
